FAERS Safety Report 22018251 (Version 2)
Quarter: 2023Q1

REPORT INFORMATION
  Report Type: Spontaneous
  Country: US (occurrence: US)
  Receive Date: 20230221
  Receipt Date: 20230327
  Transmission Date: 20230417
  Serious: Yes (Death)
  Sender: FDA-Public Use
  Company Number: US-LUNDBECK-DKLU3058483

PATIENT
  Age: 79 Year
  Sex: Female

DRUGS (1)
  1. NORTHERA [Suspect]
     Active Substance: DROXIDOPA
     Indication: Parkinson^s disease
     Route: 048
     Dates: start: 201608

REACTIONS (1)
  - Parkinson^s disease [Fatal]

NARRATIVE: CASE EVENT DATE: 20230218
